FAERS Safety Report 7511762-9 (Version None)
Quarter: 2011Q2

REPORT INFORMATION
  Report Type: 
  Country: None (occurrence: None)
  Receive Date: 20110531
  Receipt Date: 20110520
  Transmission Date: 20111010
  Serious: Yes (Hospitalization)
  Sender: FDA-Public Use
  Company Number: US-NOVOPROD-328685

PATIENT
  Sex: Female
  Weight: 90.7 kg

DRUGS (13)
  1. NOVOLOG [Suspect]
     Indication: TYPE 2 DIABETES MELLITUS
     Dosage: 1 UNIT PER 10 GRAMS CARB
     Dates: start: 20000101
  2. LIPITOR [Concomitant]
     Indication: BLOOD CHOLESTEROL INCREASED
  3. CYMBALTA [Concomitant]
     Indication: DIABETIC NEUROPATHY
  4. PROTONIX [Concomitant]
     Indication: GASTROOESOPHAGEAL REFLUX DISEASE
  5. DILANTIN [Concomitant]
     Indication: DIABETIC NEUROPATHY
  6. POTASSIUM CHLORIDE [Concomitant]
     Indication: BLOOD POTASSIUM DECREASED
  7. SINGULAIR [Concomitant]
     Indication: HYPERSENSITIVITY
  8. SPIROLACTON [Concomitant]
     Indication: JOINT SWELLING
  9. AMBIEN [Concomitant]
     Indication: INSOMNIA
  10. HYDROCODONE BITARTRATE [Concomitant]
     Indication: PAIN
  11. LEVEMIR [Suspect]
     Indication: TYPE 2 DIABETES MELLITUS
     Dosage: 28 IU, QD
     Dates: start: 20000101
  12. PROTONIX [Concomitant]
     Indication: IMPAIRED GASTRIC EMPTYING
  13. ALBUTEROL [Concomitant]
     Indication: HYPERSENSITIVITY

REACTIONS (1)
  - ATRIAL FIBRILLATION [None]
